FAERS Safety Report 14554733 (Version 1)
Quarter: 2018Q1

REPORT INFORMATION
  Report Type: Spontaneous
  Country: US (occurrence: US)
  Receive Date: 20180220
  Receipt Date: 20180220
  Transmission Date: 20180509
  Serious: Yes (Other)
  Sender: FDA-Public Use
  Company Number: US-ELI_LILLY_AND_COMPANY-US201802007019

PATIENT
  Sex: Male

DRUGS (3)
  1. FENTANYL. [Concomitant]
     Active Substance: FENTANYL
     Indication: BACK PAIN
  2. ASPIRIN                            /00002701/ [Concomitant]
     Active Substance: ASPIRIN
     Indication: CAROTID ARTERY OCCLUSION
  3. CIALIS [Suspect]
     Active Substance: TADALAFIL
     Indication: PRODUCT USED FOR UNKNOWN INDICATION
     Dosage: 5 MG, UNK
     Route: 065
     Dates: start: 2016

REACTIONS (5)
  - Carotid artery occlusion [Unknown]
  - Lung disorder [Unknown]
  - Pneumonia aspiration [Unknown]
  - Weight decreased [Unknown]
  - Amnesia [Unknown]

NARRATIVE: CASE EVENT DATE: 2016
